FAERS Safety Report 6233108-9 (Version None)
Quarter: 2009Q2

REPORT INFORMATION
  Report Type: 
  Country: None (occurrence: None)
  Receive Date: 20090617
  Receipt Date: 20090604
  Transmission Date: 20091009
  Serious: Yes (Other)
  Sender: FDA-Public Use
  Company Number: US-ELI_LILLY_AND_COMPANY-US200906001218

PATIENT
  Age: 65 Year
  Sex: Female

DRUGS (6)
  1. CYMBALTA [Suspect]
     Indication: BIPOLAR I DISORDER
     Dosage: 20 MG, UNK
     Dates: start: 20090521
  2. KLONOPIN [Concomitant]
  3. ABILIFY [Concomitant]
  4. VESICARE [Concomitant]
  5. LIPITOR [Concomitant]
  6. SYNTHROID [Concomitant]
     Dosage: UNK, UNK

REACTIONS (6)
  - ANXIETY [None]
  - FALL [None]
  - HEAD INJURY [None]
  - HEADACHE [None]
  - LOSS OF CONSCIOUSNESS [None]
  - NERVOUSNESS [None]
